FAERS Safety Report 8261877-5 (Version None)
Quarter: 2012Q1

REPORT INFORMATION
  Report Type: 
  Country: None (occurrence: None)
  Receive Date: 20120321
  Receipt Date: 20091019
  Transmission Date: 20120608
  Serious: Yes (Other)
  Sender: FDA-Public Use
  Company Number: 2009SP029995

PATIENT
  Age: 40 Year
  Sex: Male

DRUGS (7)
  1. TRIZIVIR [Concomitant]
  2. ATRIPLA [Concomitant]
  3. PEG-INTRON [Suspect]
     Indication: HEPATITIS C
     Dosage: 180 MCG; QW, 120 MCG; QW
     Dates: start: 20031125, end: 20050101
  4. PEG-INTRON [Suspect]
     Indication: HEPATITIS C
     Dosage: 180 MCG; QW, 120 MCG; QW
     Dates: start: 20031011
  5. PEGASYS [Suspect]
     Indication: HEPATITIS C
     Dosage: 180 MCG; QW
     Dates: start: 20031011, end: 20050801
  6. NICODERM [Concomitant]
  7. SUSTIVA [Concomitant]

REACTIONS (12)
  - COGNITIVE DISORDER [None]
  - HYPOTHYROIDISM [None]
  - FATIGUE [None]
  - ORAL CANDIDIASIS [None]
  - DECREASED ACTIVITY [None]
  - THINKING ABNORMAL [None]
  - NAIL DISCOLOURATION [None]
  - LEUKOPENIA [None]
  - DISEASE RECURRENCE [None]
  - HYPERTRIGLYCERIDAEMIA [None]
  - WEIGHT DECREASED [None]
  - INFLUENZA LIKE ILLNESS [None]
